FAERS Safety Report 7497003-X (Version None)
Quarter: 2011Q2

REPORT INFORMATION
  Report Type: 
  Country: None (occurrence: None)
  Receive Date: 20110523
  Receipt Date: 20110509
  Transmission Date: 20111010
  Serious: Yes (Life-Threatening)
  Sender: FDA-Public Use
  Company Number: GB-JNJFOC-20110504470

PATIENT
  Weight: 71 kg

DRUGS (2)
  1. REMICADE [Suspect]
     Indication: RHEUMATOID ARTHRITIS
     Route: 042
     Dates: start: 20070206
  2. METHOTREXATE [Concomitant]
     Dates: start: 20050405

REACTIONS (2)
  - DEPRESSION [None]
  - ATRIAL FIBRILLATION [None]
